FAERS Safety Report 8829604 (Version 1)
Quarter: 2012Q4

REPORT INFORMATION
  Report Type: 
  Country: VE (occurrence: VE)
  Receive Date: 20121008
  Receipt Date: 20121008
  Transmission Date: 20130627
  Serious: Yes (Death)
  Sender: FDA-Public Use
  Company Number: VE-ROCHE-1142761

PATIENT
  Age: 65 Year
  Sex: Male
  Weight: 60 kg

DRUGS (2)
  1. ACTILYSE [Suspect]
     Indication: MYOCARDIAL INFARCTION
     Dosage: strength: 1 mg/ml
     Route: 042
     Dates: start: 20120926, end: 20120926
  2. ATENOLOL [Concomitant]
     Indication: HYPERTENSION

REACTIONS (1)
  - Myocardial infarction [Fatal]
